FAERS Safety Report 4945465-1 (Version None)
Quarter: 2006Q1

REPORT INFORMATION
  Report Type: 
  Country: None (occurrence: None)
  Receive Date: 20060316
  Receipt Date: 20060220
  Transmission Date: 20060701
  Serious: Yes (Death)
  Sender: FDA-Public Use
  Company Number: PL-GLAXOSMITHKLINE-B0414164B

PATIENT
  Sex: Female

DRUGS (4)
  1. LAMOTRIGINE [Suspect]
     Indication: EPILEPSY
     Dates: start: 20050131
  2. ACIDUM FOLICUM [Concomitant]
     Indication: CONTRACEPTION
     Dates: start: 20041101, end: 20050701
  3. CLORAZEPATE DIPOTASSIUM [Concomitant]
     Indication: EPILEPSY
  4. FUSAFUNGINE AER [Concomitant]
     Indication: PHARYNGITIS
     Dates: start: 20050701

REACTIONS (3)
  - DRUG EXPOSURE DURING PREGNANCY [None]
  - NEONATAL ASPIRATION [None]
  - PREMATURE BABY [None]
